FAERS Safety Report 23842419 (Version 1)
Quarter: 2024Q2

REPORT INFORMATION
  Report Type: Spontaneous
  Country: US (occurrence: US)
  Receive Date: 20240510
  Receipt Date: 20240510
  Transmission Date: 20240716
  Serious: No
  Sender: FDA-Public Use
  Company Number: US-LEADINGPHARMA-US-2024LEASPO00125

PATIENT

DRUGS (2)
  1. HYDROXYUREA [Suspect]
     Active Substance: HYDROXYUREA
     Indication: Polycythaemia vera
     Route: 065
  2. ASPIRIN [Suspect]
     Active Substance: ASPIRIN
     Indication: Polycythaemia vera
     Route: 065

REACTIONS (2)
  - Patient dissatisfaction with treatment [Unknown]
  - Product use in unapproved indication [Unknown]
